FAERS Safety Report 9934748 (Version 1)
Quarter: 2014Q1

REPORT INFORMATION
  Report Type: Spontaneous
  Country: US (occurrence: US)
  Receive Date: 20140228
  Receipt Date: 20140228
  Transmission Date: 20141002
  Serious: No
  Sender: FDA-Public Use
  Company Number: US-ASTRAZENECA-2013SE63769

PATIENT
  Age: 55 Year
  Sex: Female
  Weight: 102.1 kg

DRUGS (8)
  1. TOPROL XL [Suspect]
     Indication: HYPERTENSION
     Route: 048
  2. ATACAND [Suspect]
     Indication: PRODUCT USED FOR UNKNOWN INDICATION
     Dosage: UNK
     Route: 048
  3. LISINOPRIL [Suspect]
     Indication: PRODUCT USED FOR UNKNOWN INDICATION
     Route: 048
  4. HCTZ [Suspect]
     Indication: PRODUCT USED FOR UNKNOWN INDICATION
     Route: 065
  5. NORVASC [Concomitant]
     Dosage: NOT SPECIFIED UNK
  6. VIT D [Concomitant]
     Dosage: NOT SPECIFIED UNK
  7. POTASSIUM [Concomitant]
     Dosage: NOT SPECIFIED UNK
  8. ASPRIRN [Concomitant]

REACTIONS (4)
  - Musculoskeletal pain [Unknown]
  - Neck pain [Unknown]
  - Rash [Unknown]
  - Drug hypersensitivity [Unknown]
